FAERS Safety Report 8416963-3 (Version None)
Quarter: 2012Q2

REPORT INFORMATION
  Report Type: 
  Country: None (occurrence: None)
  Receive Date: 20120606
  Receipt Date: 20120601
  Transmission Date: 20120825
  Serious: Yes (Other)
  Sender: FDA-Public Use
  Company Number: US-PFIZER INC-2012132670

PATIENT
  Sex: Male
  Weight: 80 kg

DRUGS (6)
  1. TRAMADOL HCL [Suspect]
     Indication: HEADACHE
     Dosage: 50MG FOUR TIMES A DAY AS NEEDED
     Dates: start: 20120501
  2. FISH OIL [Concomitant]
     Dosage: UNK
  3. VICODIN [Suspect]
     Indication: HEADACHE
     Dosage: 2X^500MG^ FOUR TIMES A DAY AS NEEDED
     Dates: start: 20120501
  4. ACETAMINOPHEN [Suspect]
     Indication: HEADACHE
     Dosage: UNK
     Dates: start: 20120501
  5. RELPAX [Suspect]
     Indication: HEADACHE
     Dosage: 40 MG, AS NEEDED
     Dates: start: 20120419
  6. HYDROCHLOROTHIAZIDE [Concomitant]
     Indication: BLOOD PRESSURE ABNORMAL
     Dosage: 25 MG, DAILY

REACTIONS (6)
  - HEADACHE [None]
  - SOMNOLENCE [None]
  - DRUG INEFFECTIVE [None]
  - LIMB INJURY [None]
  - FALL [None]
  - JOINT INJURY [None]
